FAERS Safety Report 15481548 (Version 1)
Quarter: 2018Q4

REPORT INFORMATION
  Report Type: Spontaneous
  Country: US (occurrence: US)
  Receive Date: 20181003
  Receipt Date: 20181003
  Transmission Date: 20190205
  Serious: Yes (Hospitalization)
  Sender: FDA-Public Use
  Company Number: None

PATIENT
  Age: 77 Year
  Sex: Male
  Weight: 97.52 kg

DRUGS (9)
  1. ALLERGY RELIEF (FEXOFENADINE HYDROCHLORIDE) [Suspect]
     Active Substance: FEXOFENADINE HYDROCHLORIDE
     Dosage: ?          QUANTITY:1 DF DOSAGE FORM;?
     Route: 048
     Dates: start: 201708, end: 201803
  2. FLUTICASONE NASAL SPRAY [Concomitant]
     Active Substance: FLUTICASONE
  3. FISH OIL [Concomitant]
     Active Substance: FISH OIL
  4. LISINOPRIL HCTZ [Concomitant]
     Active Substance: HYDROCHLOROTHIAZIDE\LISINOPRIL
  5. ATENOLOL. [Concomitant]
     Active Substance: ATENOLOL
  6. VITAMIN C [Concomitant]
     Active Substance: ASCORBIC ACID
  7. SIMVASTATIN. [Concomitant]
     Active Substance: SIMVASTATIN
  8. MULTIVITAMIN [Concomitant]
     Active Substance: VITAMINS
  9. VITAMIN D3 [Concomitant]
     Active Substance: CHOLECALCIFEROL

REACTIONS (3)
  - Urinary retention [None]
  - Urine flow decreased [None]
  - Benign prostatic hyperplasia [None]

NARRATIVE: CASE EVENT DATE: 20180303
